FAERS Safety Report 9557762 (Version 2)
Quarter: 2013Q4

REPORT INFORMATION
  Report Type: Spontaneous
  Country: ES (occurrence: None)
  Receive Date: 20130916
  Receipt Date: 20131008
  Transmission Date: 20140711
  Serious: Yes (Hospitalization)
  Sender: FDA-Public Use
  Company Number: 2013037846

PATIENT
  Age: 41 Year
  Sex: Female

DRUGS (6)
  1. PRIVIGEN [Suspect]
     Dosage: 75 ML 1X/WEEK, 3 TIMES
     Route: 058
     Dates: start: 20120901, end: 20120913
  2. PARACETAMOL [Suspect]
     Indication: ANKYLOSING SPONDYLITIS
     Dosage: 4 GRAMSS 4 TIMES
     Dates: start: 20120901, end: 20121227
  3. DIAZEPAM (DIAZEPAM) [Suspect]
     Indication: INSOMNIA
     Dates: start: 20120901, end: 20120927
  4. INOHEP [Suspect]
     Dosage: 1 KIU
     Route: 058
     Dates: start: 201203, end: 20120831
  5. NOLOTIL [Suspect]
     Dosage: 4 TIMES
     Route: 042
     Dates: start: 20120901, end: 20120927
  6. RANITIDINE (RANITIDINE) [Suspect]
     Indication: PROPHYLAXIS AGAINST GASTROINTESTINAL ULCER
     Dosage: 300MG BID
     Route: 048
     Dates: start: 20120904, end: 20120930

REACTIONS (1)
  - Hepatitis cholestatic [None]
